FAERS Safety Report 5070371-4 (Version None)
Quarter: 2006Q3

REPORT INFORMATION
  Report Type: 
  Country: None (occurrence: None)
  Receive Date: 20060731
  Receipt Date: 20060718
  Transmission Date: 20061208
  Serious: Yes (Other)
  Sender: FDA-Public Use
  Company Number: 2006EU002099

PATIENT
  Age: 33 Year
  Sex: Female

DRUGS (4)
  1. PROGRAF [Suspect]
     Indication: RENAL TRANSPLANT
     Dosage: 2.5 MG BID ORAL
     Route: 048
  2. IMURAN [Suspect]
     Indication: RENAL TRANSPLANT
     Dosage: 0.5 DF BID ORAL
     Route: 048
  3. PREDNISONE TAB [Suspect]
     Indication: RENAL TRANSPLANT
     Dosage: 5 MG UID/QD ORAL
     Route: 048
  4. KARDEGIC      (ACEYTLSALICYLATE LYSINE) [Suspect]
     Dosage: 75 MG UID/QD ORAL
     Route: 048

REACTIONS (2)
  - DRUG EXPOSURE DURING PREGNANCY [None]
  - INTRA-UTERINE DEATH [None]
